FAERS Safety Report 23959622 (Version 1)
Quarter: 2024Q2

REPORT INFORMATION
  Report Type: Report from Study
  Country: US (occurrence: US)
  Receive Date: 20240611
  Receipt Date: 20240611
  Transmission Date: 20240715
  Serious: Yes (Other)
  Sender: FDA-Public Use
  Company Number: US-UCBSA-2024027146

PATIENT
  Sex: Female

DRUGS (2)
  1. CERTOLIZUMAB PEGOL [Suspect]
     Active Substance: CERTOLIZUMAB PEGOL
     Indication: Ankylosing spondylitis
     Dosage: 200 MILLIGRAM, EV 2 WEEKS(QOW)
     Route: 058
     Dates: start: 20230301
  2. DOXYCYCLINE [Suspect]
     Active Substance: DOXYCYCLINE\DOXYCYCLINE HYCLATE
     Indication: Tick-borne fever
     Dosage: UNK
     Dates: start: 2024

REACTIONS (3)
  - Tick-borne fever [Not Recovered/Not Resolved]
  - Chest pain [Not Recovered/Not Resolved]
  - Spleen disorder [Not Recovered/Not Resolved]

NARRATIVE: CASE EVENT DATE: 20240101
